FAERS Safety Report 19308813 (Version 1)
Quarter: 2021Q2

REPORT INFORMATION
  Report Type: Report from Study
  Country: US (occurrence: US)
  Receive Date: 20210525
  Receipt Date: 20210525
  Transmission Date: 20210717
  Serious: Yes (Other)
  Sender: FDA-Public Use
  Company Number: US-SUNOVION-2021SUN001974

PATIENT
  Age: 65 Year
  Sex: Male

DRUGS (1)
  1. KYNMOBI [Suspect]
     Active Substance: APOMORPHINE HYDROCHLORIDE
     Indication: PARKINSON^S DISEASE
     Dosage: 10 MG
     Route: 060
     Dates: start: 20210520

REACTIONS (4)
  - Dizziness [Recovered/Resolved]
  - Heart rate decreased [Recovered/Resolved]
  - Blood pressure increased [Recovered/Resolved]
  - Blood pressure decreased [Recovered/Resolved]

NARRATIVE: CASE EVENT DATE: 20210520
